FAERS Safety Report 5301354-4 (Version None)
Quarter: 2007Q1

REPORT INFORMATION
  Report Type: 
  Country: None (occurrence: None)
  Receive Date: 20070201
  Receipt Date: 20061213
  Transmission Date: 20070707
  Serious: No
  Sender: FDA-Public Use
  Company Number: 2006PV026912

PATIENT
  Age: 70 Year
  Sex: Female

DRUGS (2)
  1. BYETTA [Suspect]
     Indication: DIABETES MELLITUS NON-INSULIN-DEPENDENT
     Dosage: 10 MCG;BID;SC
     Route: 058
     Dates: start: 20061202, end: 20061211
  2. GLUCOPHAGE [Suspect]
     Indication: DRUG USE FOR UNKNOWN INDICATION
     Dosage: 500 MG;QPM;PO
     Route: 048
     Dates: start: 20050101

REACTIONS (5)
  - BLOOD GLUCOSE DECREASED [None]
  - DYSPEPSIA [None]
  - FEELING JITTERY [None]
  - MALAISE [None]
  - SOMNOLENCE [None]
